FAERS Safety Report 19230492 (Version 7)
Quarter: 2022Q1

REPORT INFORMATION
  Report Type: Spontaneous
  Country: JP (occurrence: JP)
  Receive Date: 20210507
  Receipt Date: 20220214
  Transmission Date: 20220424
  Serious: Yes (Other)
  Sender: FDA-Public Use
  Company Number: NVSJ2021JP006767

PATIENT
  Age: 82 Year
  Sex: Male

DRUGS (3)
  1. BEOVU [Suspect]
     Active Substance: BROLUCIZUMAB-DBLL
     Indication: Neovascular age-related macular degeneration
     Dosage: 6 MG
     Route: 031
     Dates: start: 20210406, end: 20210406
  2. PIRENOXINE [Concomitant]
     Active Substance: PIRENOXINE
     Indication: Cataract
     Dosage: 1 DRP, QID
     Route: 047
     Dates: start: 20210310, end: 20210426
  3. LEVOFLOXACIN [Concomitant]
     Active Substance: LEVOFLOXACIN
     Indication: Infection prophylaxis
     Dosage: 1 DRP, QID
     Route: 047
     Dates: start: 20210406, end: 20210412

REACTIONS (11)
  - Anterior chamber inflammation [Recovered/Resolved]
  - Vision blurred [Recovered/Resolved]
  - Visual acuity reduced transiently [Recovered/Resolved]
  - Retinal haemorrhage [Recovering/Resolving]
  - Vitreous haemorrhage [Recovered/Resolved]
  - Eye inflammation [Recovered/Resolved with Sequelae]
  - Keratic precipitates [Recovered/Resolved]
  - Retinal vasculitis [Recovering/Resolving]
  - Retinal perivascular sheathing [Recovering/Resolving]
  - Retinal artery occlusion [Recovering/Resolving]
  - Iridocyclitis [Recovered/Resolved]

NARRATIVE: CASE EVENT DATE: 20210401
